FAERS Safety Report 21871805 (Version 1)
Quarter: 2023Q1

REPORT INFORMATION
  Report Type: Spontaneous
  Country: US (occurrence: None)
  Receive Date: 20230114
  Receipt Date: 20230114
  Transmission Date: 20230417
  Serious: Yes (Other)
  Sender: FDA-Public Use
  Company Number: None

PATIENT
  Age: 29 Year
  Sex: Female
  Weight: 74.84 kg

DRUGS (2)
  1. PARAGARD T 380A [Suspect]
     Active Substance: COPPER
  2. UNSPECIFIED INGREDIENT [Suspect]
     Active Substance: UNSPECIFIED INGREDIENT

REACTIONS (11)
  - Anxiety [None]
  - Depression [None]
  - Attention deficit hyperactivity disorder [None]
  - Pelvic pain [None]
  - Uterine spasm [None]
  - Heavy menstrual bleeding [None]
  - Dysmenorrhoea [None]
  - Abdominal distension [None]
  - Acne cystic [None]
  - Fatigue [None]
  - Decreased appetite [None]

NARRATIVE: CASE EVENT DATE: 20210129
